FAERS Safety Report 4639019-4 (Version None)
Quarter: 2005Q2

REPORT INFORMATION
  Report Type: 
  Country: None (occurrence: None)
  Receive Date: 20050419
  Receipt Date: 20050211
  Transmission Date: 20051028
  Serious: Yes (Other)
  Sender: FDA-Public Use
  Company Number: GB-ROCHE-395260

PATIENT
  Age: 60 Year
  Sex: Female
  Weight: 103 kg

DRUGS (1)
  1. XENICAL [Suspect]
     Indication: OVERWEIGHT
     Route: 048
     Dates: start: 20040910, end: 20041201

REACTIONS (2)
  - MELAENA [None]
  - RECTAL HAEMORRHAGE [None]
